FAERS Safety Report 18144484 (Version 3)
Quarter: 2020Q4

REPORT INFORMATION
  Report Type: Report from Study
  Country: None (occurrence: US)
  Receive Date: 20200813
  Receipt Date: 20201125
  Transmission Date: 20210113
  Serious: Yes (Hospitalization)
  Sender: FDA-Public Use
  Company Number: US-ABBVIE-20K-163-3521629-00

PATIENT
  Age: 81 Year
  Sex: Female
  Weight: 59.02 kg

DRUGS (4)
  1. CREON [Suspect]
     Active Substance: PANCRELIPASE AMYLASE\PANCRELIPASE LIPASE\PANCRELIPASE PROTEASE
     Indication: PANCREATIC FAILURE
     Dosage: THREE CAPSULES EACH MEALS AND ONE WITH SNACK
     Route: 048
     Dates: start: 2019
  2. CREON [Suspect]
     Active Substance: PANCRELIPASE AMYLASE\PANCRELIPASE LIPASE\PANCRELIPASE PROTEASE
     Dosage: THREE CAPSULES EACH MEALS AND ONE WITH SNACK?TEN CAPSULES IN A DAY
     Route: 048
     Dates: start: 202004
  3. PREDNISONE. [Suspect]
     Active Substance: PREDNISONE
     Indication: PRODUCT USED FOR UNKNOWN INDICATION
     Route: 065
  4. IMURAN [Concomitant]
     Active Substance: AZATHIOPRINE
     Indication: PRODUCT USED FOR UNKNOWN INDICATION

REACTIONS (4)
  - Blood glucose increased [Recovered/Resolved]
  - Diarrhoea [Not Recovered/Not Resolved]
  - Diabetes mellitus [Unknown]
  - Autoimmune disorder [Recovering/Resolving]

NARRATIVE: CASE EVENT DATE: 2020
